FAERS Safety Report 19417280 (Version 1)
Quarter: 2021Q2

REPORT INFORMATION
  Report Type: Spontaneous
  Country: US (occurrence: US)
  Receive Date: 20210615
  Receipt Date: 20210615
  Transmission Date: 20210717
  Serious: No
  Sender: FDA-Public Use
  Company Number: None

PATIENT
  Age: 30 Year
  Sex: Female
  Weight: 72 kg

DRUGS (2)
  1. BUPROPION SR [Suspect]
     Active Substance: BUPROPION HYDROCHLORIDE
     Indication: DEPRESSION
     Route: 048
     Dates: start: 20210513, end: 20210611
  2. BUPROPION SR [Suspect]
     Active Substance: BUPROPION HYDROCHLORIDE
     Indication: ATTENTION DEFICIT HYPERACTIVITY DISORDER
     Route: 048
     Dates: start: 20210513, end: 20210611

REACTIONS (3)
  - Vulvovaginal mycotic infection [None]
  - Dyspnoea [None]
  - Oral candidiasis [None]

NARRATIVE: CASE EVENT DATE: 20210615
